FAERS Safety Report 8491186-0 (Version None)
Quarter: 2012Q3

REPORT INFORMATION
  Report Type: 
  Country: None (occurrence: None)
  Receive Date: 20120706
  Receipt Date: 20120626
  Transmission Date: 20120928
  Serious: Yes (Hospitalization, Other)
  Sender: FDA-Public Use
  Company Number: CA-JNJFOC-20120613308

PATIENT
  Sex: Female
  Weight: 57 kg

DRUGS (8)
  1. REMICADE [Suspect]
     Indication: CROHN'S DISEASE
     Dosage: ONCE IN EVERY2, 6 AND 8 WEEKS
     Route: 042
     Dates: start: 20120501
  2. CIPROFLOXACIN HCL [Concomitant]
     Route: 065
  3. PREDNISONE TAB [Concomitant]
     Route: 065
  4. FLAGYL [Concomitant]
     Route: 065
  5. COUMADIN [Suspect]
     Indication: PRODUCT USED FOR UNKNOWN INDICATION
     Route: 065
  6. TINZAPARIN [Concomitant]
     Route: 065
  7. IMURAN [Concomitant]
     Route: 065
  8. PANTOPRAZOLE SODIUM [Concomitant]
     Route: 065

REACTIONS (2)
  - RECTAL HAEMORRHAGE [None]
  - CROHN'S DISEASE [None]
